FAERS Safety Report 11711890 (Version 1)
Quarter: 2015Q4

REPORT INFORMATION
  Report Type: Spontaneous
  Country: US (occurrence: US)
  Receive Date: 20151104
  Receipt Date: 20151104
  Transmission Date: 20160304
  Serious: No
  Sender: FDA-Public Use
  Company Number: US-ELI_LILLY_AND_COMPANY-US201101002753

PATIENT
  Sex: Female

DRUGS (1)
  1. FORTEO [Suspect]
     Active Substance: TERIPARATIDE
     Indication: OSTEOPOROSIS
     Route: 065

REACTIONS (7)
  - Nausea [Unknown]
  - Abdominal distension [Unknown]
  - Dyspepsia [Unknown]
  - Pain [Unknown]
  - Flatulence [Unknown]
  - Eating disorder [Unknown]
  - Diarrhoea [Unknown]
